FAERS Safety Report 24623253 (Version 1)
Quarter: 2024Q4

REPORT INFORMATION
  Report Type: Spontaneous
  Country: AT (occurrence: AT)
  Receive Date: 20241115
  Receipt Date: 20241115
  Transmission Date: 20250115
  Serious: Yes (Other)
  Sender: ROCHE
  Company Number: AT-ROCHE-10000128177

PATIENT
  Age: 76 Year
  Sex: Female

DRUGS (6)
  1. ATEZOLIZUMAB [Suspect]
     Active Substance: ATEZOLIZUMAB
     Indication: Small cell lung cancer
     Route: 065
     Dates: start: 20221214
  2. ATEZOLIZUMAB [Suspect]
     Active Substance: ATEZOLIZUMAB
     Indication: Malignant pleural effusion
  3. ETOPOSIDE [Suspect]
     Active Substance: ETOPOSIDE
     Indication: Small cell lung cancer
     Route: 065
     Dates: start: 20221214
  4. ETOPOSIDE [Suspect]
     Active Substance: ETOPOSIDE
     Indication: Malignant pleural effusion
  5. CARBOPLATIN [Suspect]
     Active Substance: CARBOPLATIN
     Indication: Small cell lung cancer
     Dosage: ON 11/JAN/2023: 2ND CYCLE, 01/FEB/2023: 3RD CYCLE AND ON 22/FEB/2023: 4TH CYCLE
     Route: 065
     Dates: start: 20221214
  6. CARBOPLATIN [Suspect]
     Active Substance: CARBOPLATIN
     Indication: Malignant pleural effusion

REACTIONS (5)
  - Hypothyroidism [Unknown]
  - Adrenal adenoma [Unknown]
  - Metastases to central nervous system [Unknown]
  - Gait disturbance [Unknown]
  - Muscular weakness [Unknown]

NARRATIVE: CASE EVENT DATE: 20230601
